FAERS Safety Report 25184304 (Version 1)
Quarter: 2025Q2

REPORT INFORMATION
  Report Type: Spontaneous
  Country: US (occurrence: US)
  Receive Date: 20250410
  Receipt Date: 20250410
  Transmission Date: 20250717
  Serious: No
  Sender: GLAND PHARMA
  Company Number: US-GLANDPHARMA-US-2025GLNSPO00748

PATIENT
  Sex: Male

DRUGS (7)
  1. BROMFENAC OPHTHALMIC SOLUTION 0.09% [Suspect]
     Active Substance: BROMFENAC SODIUM
     Indication: Product used for unknown indication
     Dates: start: 202305
  2. BROMFENAC OPHTHALMIC SOLUTION 0.09% [Suspect]
     Active Substance: BROMFENAC SODIUM
     Dates: start: 202305
  3. DIFLUPREDNATE [Concomitant]
     Active Substance: DIFLUPREDNATE
     Indication: Product used for unknown indication
     Route: 065
     Dates: start: 202305
  4. DIFLUPREDNATE [Concomitant]
     Active Substance: DIFLUPREDNATE
     Route: 065
     Dates: start: 202305
  5. METFORMIN [Concomitant]
     Active Substance: METFORMIN HYDROCHLORIDE
     Indication: Diabetes mellitus
     Route: 065
  6. ROSUVASTATIN [Concomitant]
     Active Substance: ROSUVASTATIN
     Indication: Product used for unknown indication
     Route: 065
  7. TAMSULOSIN [Concomitant]
     Active Substance: TAMSULOSIN
     Indication: Product used for unknown indication
     Route: 065

REACTIONS (4)
  - Sleep disorder [Unknown]
  - Eye swelling [Unknown]
  - Ocular discomfort [Unknown]
  - Eye pruritus [Unknown]
